FAERS Safety Report 8367767-1 (Version None)
Quarter: 2012Q2

REPORT INFORMATION
  Report Type: 
  Country: None (occurrence: None)
  Receive Date: 20120517
  Receipt Date: 20120511
  Transmission Date: 20120825
  Serious: Yes (Hospitalization)
  Sender: FDA-Public Use
  Company Number: US-BAYER-2012-047509

PATIENT
  Age: 42 Year
  Sex: Female
  Weight: 93.878 kg

DRUGS (15)
  1. YAZ [Suspect]
  2. IBUPROFEN [Concomitant]
     Dosage: 400 MG, ONE DOSE UNK
     Route: 048
     Dates: start: 20100528
  3. MULTI-VITAMIN [Concomitant]
     Dosage: UNK, QD
     Route: 048
     Dates: start: 20110531
  4. PREDNISONE TAB [Concomitant]
     Dosage: 20 MG, UNK
     Route: 048
     Dates: start: 20110204
  5. SYNTHROID [Concomitant]
     Dosage: 125 MCG/24HR, QD
     Route: 048
     Dates: start: 20100608
  6. MULTI-VITAMIN [Concomitant]
     Dosage: UNK UNK, QD
     Route: 048
     Dates: start: 20100608
  7. ZYRTEC [Concomitant]
     Dosage: 10 MG, QD
     Route: 048
     Dates: start: 20110531
  8. YASMIN [Suspect]
  9. MOTRIN [Concomitant]
     Dosage: 600 MG, TID
     Route: 048
     Dates: start: 20100608
  10. WARFARIN SODIUM [Concomitant]
     Dosage: 5 MG, UNK
     Route: 048
     Dates: start: 20110301
  11. NAPROXEN [Concomitant]
     Indication: PAIN
     Dosage: 500 MG, BID AS NEEDED
     Route: 048
     Dates: start: 20100528
  12. LEVOXYL [Concomitant]
     Dosage: 0.125 MG, QD
     Route: 048
     Dates: start: 20100528, end: 20110415
  13. CALCIUM WITH VITAMIN D [Concomitant]
     Dosage: 600 MG, BID
     Route: 048
     Dates: start: 20100608
  14. RELPAX [Concomitant]
     Indication: HEADACHE
     Dosage: 40 MG, UNK
     Route: 048
     Dates: start: 20110204
  15. DROSPIRENONE AND ETHINYL ESTRADIOL [Suspect]

REACTIONS (3)
  - DEEP VEIN THROMBOSIS [None]
  - PULMONARY EMBOLISM [None]
  - CHOLECYSTITIS CHRONIC [None]
